FAERS Safety Report 4929963-2 (Version None)
Quarter: 2006Q1

REPORT INFORMATION
  Report Type: 
  Country: None (occurrence: None)
  Receive Date: 20060127
  Receipt Date: 20051130
  Transmission Date: 20060701
  Serious: Yes (Other)
  Sender: FDA-Public Use
  Company Number: 2005143456

PATIENT
  Age: 81 Year
  Sex: Female

DRUGS (5)
  1. LYRICA [Suspect]
     Indication: NEUROPATHY
     Dosage: 300 MG (300 MG 1 IN 1 D)
     Dates: start: 20050920
  2. NEURONTIN [Suspect]
     Indication: ILL-DEFINED DISORDER
  3. CYMBALTA [Suspect]
     Indication: ILL-DEFINED DISORDER
  4. LIPITOR [Concomitant]
  5. TYLENOL [Concomitant]

REACTIONS (3)
  - DIARRHOEA [None]
  - DISORIENTATION [None]
  - MUSCLE SPASMS [None]
